FAERS Safety Report 5684421-5 (Version None)
Quarter: 2008Q1

REPORT INFORMATION
  Report Type: 
  Country: None (occurrence: None)
  Receive Date: 20080327
  Receipt Date: 20080327
  Transmission Date: 20080703
  Serious: No
  Sender: FDA-Public Use
  Company Number: None

PATIENT
  Sex: Female

DRUGS (1)
  1. HALCION [Suspect]
     Indication: INSOMNIA
     Dates: start: 20080320

REACTIONS (1)
  - DRUG INEFFECTIVE [None]
